FAERS Safety Report 16508747 (Version 1)
Quarter: 2019Q3

REPORT INFORMATION
  Report Type: Spontaneous
  Country: ES (occurrence: ES)
  Receive Date: 20190701
  Receipt Date: 20190701
  Transmission Date: 20191004
  Serious: Yes (Hospitalization, Other)
  Sender: FDA-Public Use
  Company Number: ES-MYLANLABS-2019M1059727

PATIENT
  Age: 72 Year
  Sex: Female
  Weight: 74 kg

DRUGS (18)
  1. ESCITALOPRAM [Suspect]
     Active Substance: ESCITALOPRAM OXALATE
     Indication: DEPRESSION
     Dosage: ESCITALOPRAM 15 EFG: 1 COMPRIMIDO/D?A CON EL DESAYUNO. DURANTE EL INGRESO EN HIST?RICO DE L?NEAS DE
     Route: 048
     Dates: start: 20181221, end: 20181222
  2. PARACETAMOL [Concomitant]
     Active Substance: ACETAMINOPHEN
     Dosage: UNK
  3. BOREA [Concomitant]
     Active Substance: MEGESTROL ACETATE
     Dosage: UNK
  4. CLEXANE [Concomitant]
     Active Substance: ENOXAPARIN SODIUM
     Dosage: UNK
     Route: 058
  5. HIDROXIL B12 B6 B1 [Concomitant]
     Active Substance: HYDROXOCOBALAMIN\PYRIDOXINE HYDROCHLORIDE\THIAMINE HYDROCHLORIDE
     Dosage: UNK
  6. DUROGESIC [Interacting]
     Active Substance: FENTANYL
     Indication: PAIN
     Dosage: DUROGESIC: 1 PARCHE TRANSD?RMICO DE 100 MICROGRS. Y OTRO DE 50 MICROGRS. CADA 72 HORAS
     Route: 062
     Dates: start: 20181221
  7. NEURONTIN [Interacting]
     Active Substance: GABAPENTIN
     Indication: PRODUCT USED FOR UNKNOWN INDICATION
     Dosage: NEURONT?N 300: 1 COMPRIMIDO CON EL DESAYUNO, COMIDA Y CENA
     Route: 048
     Dates: start: 201509
  8. SEVREDOL [Interacting]
     Active Substance: MORPHINE
     Indication: BACK PAIN
     Dosage: SEVREDOL 10: 1 COMPRIMIDO SI DOLORES IMPORTANTES A PESAR DEL TRATAMIENTO CON NEURONT?N 300 Y DUROGES
     Route: 048
     Dates: start: 20181221
  9. ZOVIRAX [Interacting]
     Active Substance: ACYCLOVIR
     Dosage: UNK
  10. NOLOTIL                            /00473101/ [Concomitant]
     Active Substance: METAMIZOLE\PROPOXYPHENE
     Dosage: UNK
  11. PANTOPRAZOL                        /01263201/ [Concomitant]
     Active Substance: PANTOPRAZOLE
     Dosage: UNK
  12. NATECAL D [Concomitant]
     Active Substance: CALCIUM CARBONATE\CHOLECALCIFEROL
     Dosage: UNK
  13. MYCOSTATIN [Concomitant]
     Active Substance: NYSTATIN
     Dosage: UNK
  14. BINOCRIT [Concomitant]
     Active Substance: ERYTHROPOIETIN
     Dosage: UNK
     Route: 058
  15. SERETIDE [Concomitant]
     Active Substance: FLUTICASONE PROPIONATE\SALMETEROL XINAFOATE
     Dosage: UNK
  16. TRANKIMAZIN [Interacting]
     Active Substance: ALPRAZOLAM
     Indication: DEPRESSION
     Dosage: TRANKIMAZ?N 1: 1 COMPRIMIDO/D?A 30 MINUTOS ANTES DE ACOSTARSE.
     Route: 048
     Dates: start: 201706
  17. ZYLORIC [Concomitant]
     Active Substance: ALLOPURINOL
     Dosage: UNK
  18. SEGURIL [Concomitant]
     Active Substance: FUROSEMIDE
     Dosage: UNK

REACTIONS (3)
  - Drug interaction [Unknown]
  - Respiratory depression [Recovered/Resolved]
  - Depressed level of consciousness [Recovered/Resolved]

NARRATIVE: CASE EVENT DATE: 20181222
